FAERS Safety Report 20559097 (Version 1)
Quarter: 2022Q1

REPORT INFORMATION
  Report Type: Spontaneous
  Country: DE (occurrence: DE)
  Receive Date: 20220307
  Receipt Date: 20220307
  Transmission Date: 20220424
  Serious: Yes (Other)
  Sender: FDA-Public Use
  Company Number: None

PATIENT
  Age: 66 Year
  Sex: Female
  Weight: 59 kg

DRUGS (2)
  1. LEVOFLOXACIN [Suspect]
     Active Substance: LEVOFLOXACIN
     Indication: Urinary tract infection
     Dosage: 500 MG, Q12H (1-0-1 2 TAGE, BEGINN AM 09.02.2022 ABENDS, LETZTE EINNAHME AM 11.02.2022 MORGENS)
     Route: 048
     Dates: start: 20220209, end: 20220211
  2. LEVOFLOXACIN [Suspect]
     Active Substance: LEVOFLOXACIN
     Dosage: 250 MG, Q12H (NACH NEBENWIRKUNGSBEGINN 1/2-0-1/2 WEITERE 3 TAGE, BEGINN 11.02.2022 ABENDS, ENDE MIT
     Route: 048
     Dates: start: 20220211, end: 20220214

REACTIONS (4)
  - Myosclerosis [Recovering/Resolving]
  - Pain in extremity [Recovering/Resolving]
  - Muscle spasms [Recovering/Resolving]
  - Mobility decreased [Recovering/Resolving]

NARRATIVE: CASE EVENT DATE: 20220211
